FAERS Safety Report 11771801 (Version 7)
Quarter: 2016Q1

REPORT INFORMATION
  Report Type: Spontaneous
  Country: US (occurrence: US)
  Receive Date: 20151124
  Receipt Date: 20160328
  Transmission Date: 20160525
  Serious: Yes (Hospitalization, Other)
  Sender: FDA-Public Use
  Company Number: US-PFIZER INC-2015341279

PATIENT
  Age: 58 Year
  Sex: Female
  Weight: 102 kg

DRUGS (11)
  1. SUTENT [Suspect]
     Active Substance: SUNITINIB MALATE
     Dosage: 25 MG, CYCLIC, (28 DAYS ON/14 DAYS OFF)
     Dates: start: 20160105, end: 20160202
  2. COD LIVER OIL [Concomitant]
     Active Substance: COD LIVER OIL
     Dosage: UNK
  3. HYDROCHLOROTHIAZIDE AND LISINOPRIL [Concomitant]
     Active Substance: HYDROCHLOROTHIAZIDE\LISINOPRIL
     Dosage: LISINOPRIL 20 MG+HYDROCHLOROTHIAZIDE 12.5 MG, TABLET
  4. COUMADIN [Concomitant]
     Active Substance: WARFARIN SODIUM
     Dosage: UNK
  5. SUTENT [Suspect]
     Active Substance: SUNITINIB MALATE
     Indication: METASTATIC RENAL CELL CARCINOMA
     Dosage: 50 MG, CYCLIC (28 DAYS ON/14 DAYS OFF)
     Dates: start: 20151022
  6. PROMETHAZINE [Concomitant]
     Active Substance: PROMETHAZINE\PROMETHAZINE HYDROCHLORIDE
     Dosage: UNK
  7. SUTENT [Suspect]
     Active Substance: SUNITINIB MALATE
     Dosage: 25 MG, CYCLIC, (28 DAYS ON/14 DAYS OFF)
     Dates: start: 20151203, end: 20151220
  8. ZOFRAN [Concomitant]
     Active Substance: ONDANSETRON HYDROCHLORIDE
     Dosage: UNK
  9. BABY ASPIRIN [Concomitant]
     Active Substance: ASPIRIN
     Dosage: UNK
  10. LOMOTIL [Concomitant]
     Active Substance: ATROPINE SULFATE\DIPHENOXYLATE HYDROCHLORIDE
     Dosage: UNK
  11. LASIX [Concomitant]
     Active Substance: FUROSEMIDE
     Dosage: UNK

REACTIONS (31)
  - Blister [Recovered/Resolved]
  - Asthenia [Unknown]
  - Oral mucosal blistering [Unknown]
  - Skin exfoliation [Unknown]
  - Arrhythmia [Unknown]
  - General physical health deterioration [Unknown]
  - Loss of consciousness [Unknown]
  - Vomiting [Recovered/Resolved]
  - Hypophagia [Unknown]
  - Visual impairment [Unknown]
  - Dysgeusia [Unknown]
  - Haemorrhagic disorder [Unknown]
  - Oesophageal achalasia [Unknown]
  - Nausea [Recovered/Resolved]
  - Weight decreased [Not Recovered/Not Resolved]
  - Decreased appetite [Unknown]
  - Oesophageal disorder [Unknown]
  - Hypotension [Unknown]
  - Pain [Unknown]
  - Dehydration [Unknown]
  - Diarrhoea [Recovered/Resolved]
  - Gastrooesophageal reflux disease [Unknown]
  - Hypertension [Unknown]
  - Pulmonary thrombosis [Unknown]
  - Abdominal pain [Unknown]
  - Thrombosis [Unknown]
  - Electrocardiogram abnormal [Unknown]
  - Dry skin [Recovered/Resolved]
  - Fatigue [Not Recovered/Not Resolved]
  - Alopecia [Unknown]
  - Thyroid disorder [Unknown]

NARRATIVE: CASE EVENT DATE: 20151221
